FAERS Safety Report 12896937 (Version 1)
Quarter: 2016Q4

REPORT INFORMATION
  Report Type: Spontaneous
  Country: US (occurrence: US)
  Receive Date: 20161028
  Receipt Date: 20161028
  Transmission Date: 20170207
  Serious: Yes (Hospitalization)
  Sender: FDA-Public Use
  Company Number: None

PATIENT
  Age: 59 Year
  Sex: Male
  Weight: 59.2 kg

DRUGS (20)
  1. LEUCOVORIN 680 MG [Suspect]
     Active Substance: LEUCOVORIN
     Route: 042
  2. OXALIPLATIN 145MG [Suspect]
     Active Substance: OXALIPLATIN
     Route: 042
  3. PERICOLACE [Concomitant]
  4. PANTOPRAZOLE [Concomitant]
     Active Substance: PANTOPRAZOLE SODIUM
  5. LORAZEPAM 1 MG [Concomitant]
     Active Substance: LORAZEPAM
  6. EFFEXOR [Concomitant]
     Active Substance: VENLAFAXINE HYDROCHLORIDE
  7. ASPIRIN. [Concomitant]
     Active Substance: ASPIRIN
  8. DEXAMETHASONE. [Concomitant]
     Active Substance: DEXAMETHASONE
  9. FOLVITE 1 MG [Concomitant]
  10. MULTIVITAMIN [Concomitant]
     Active Substance: VITAMINS
  11. METOCLOPRAMIDE. [Concomitant]
     Active Substance: METOCLOPRAMIDE
  12. ACETAMINOPHEN. [Concomitant]
     Active Substance: ACETAMINOPHEN
  13. BENTYL 10 MG [Concomitant]
  14. ABRAXANE [Suspect]
     Active Substance: PACLITAXEL
     Indication: PANCREATIC CARCINOMA
     Route: 042
     Dates: start: 20150710, end: 20150712
  15. FLUOROUCIL 4,080 MG [Suspect]
     Active Substance: FLUOROURACIL
  16. MIRALAX [Concomitant]
     Active Substance: POLYETHYLENE GLYCOL 3350
  17. REMERON [Concomitant]
     Active Substance: MIRTAZAPINE
  18. PILCARPINE [Concomitant]
  19. THIAMINE. [Concomitant]
     Active Substance: THIAMINE
  20. OXYCODONE [Concomitant]
     Active Substance: OXYCODONE

REACTIONS (4)
  - Vomiting [None]
  - Drug ineffective [None]
  - Abdominal pain [None]
  - Nausea [None]

NARRATIVE: CASE EVENT DATE: 20150712
